FAERS Safety Report 7130842-3 (Version None)
Quarter: 2010Q4

REPORT INFORMATION
  Report Type: 
  Country: None (occurrence: None)
  Receive Date: 20101201
  Receipt Date: 20101117
  Transmission Date: 20110411
  Serious: Yes (Death, Hospitalization)
  Sender: FDA-Public Use
  Company Number: HR-ROCHE-743011

PATIENT
  Sex: Male
  Weight: 103 kg

DRUGS (2)
  1. BEVACIZUMAB [Suspect]
     Route: 042
  2. CAPECITABINE [Suspect]
     Dosage: GIVEN AS DIVIDED DOSE, D1-14 OF 21 D CYCLE.
     Route: 048

REACTIONS (3)
  - DEATH [None]
  - DIARRHOEA [None]
  - PULMONARY OEDEMA [None]
